FAERS Safety Report 12587780 (Version 3)
Quarter: 2016Q3

REPORT INFORMATION
  Report Type: Spontaneous
  Country: BR (occurrence: BR)
  Receive Date: 20160725
  Receipt Date: 20160825
  Transmission Date: 20161109
  Serious: Yes (Other)
  Sender: FDA-Public Use
  Company Number: BR-PFIZER INC-2016352013

PATIENT
  Age: 50 Year
  Sex: Female
  Weight: 63 kg

DRUGS (2)
  1. FRONTAL XR [Suspect]
     Active Substance: ALPRAZOLAM
     Indication: ANXIETY
     Dosage: 1 TABLET (STRENGTH OF 1 MG), DAILY
     Route: 048
     Dates: start: 2008
  2. FRONTAL XR [Suspect]
     Active Substance: ALPRAZOLAM
     Dosage: 0.5 MG, UNK
     Route: 048

REACTIONS (5)
  - Tachycardia [Unknown]
  - Withdrawal syndrome [Unknown]
  - Tremor [Unknown]
  - Haemorrhoids [Unknown]
  - Paraesthesia oral [Unknown]
